FAERS Safety Report 9068575 (Version 1)
Quarter: 2013Q1

REPORT INFORMATION
  Report Type: Spontaneous
  Country: US (occurrence: None)
  Receive Date: 20130212
  Receipt Date: 20130212
  Transmission Date: 20140127
  Serious: Yes (Hospitalization)
  Sender: FDA-Public Use
  Company Number: None

PATIENT
  Age: 55 Year
  Sex: Male
  Weight: 99.79 kg

DRUGS (2)
  1. AVASTIN [Suspect]
     Indication: COLON CANCER METASTATIC
     Dosage: EVERY 2 WEEKS/8 CY  IV BOLUS?8 CYCLES EVERY 2 WEEKS
     Route: 040
     Dates: start: 20121002, end: 20130122
  2. AVASTIN [Suspect]
     Indication: METASTASES TO LIVER
     Dosage: EVERY 2 WEEKS/8 CY  IV BOLUS?8 CYCLES EVERY 2 WEEKS
     Route: 040
     Dates: start: 20121002, end: 20130122

REACTIONS (2)
  - Anal fistula [None]
  - Abscess [None]
